FAERS Safety Report 8340157-3 (Version None)
Quarter: 2012Q2

REPORT INFORMATION
  Report Type: 
  Country: None (occurrence: None)
  Receive Date: 20120507
  Receipt Date: 20120125
  Transmission Date: 20120825
  Serious: Yes (Other)
  Sender: FDA-Public Use
  Company Number: US-ASTRAZENECA-2011SE58154

PATIENT
  Age: 77 Year
  Sex: Male
  Weight: 75.7 kg

DRUGS (4)
  1. LISINOPRIL [Suspect]
     Route: 048
  2. NAPROXEN (ALEVE) [Concomitant]
     Indication: OSTEOARTHRITIS
     Route: 048
     Dates: end: 20111201
  3. COZAAR [Concomitant]
     Indication: HYPERTENSION
  4. VIMOVO [Suspect]
     Indication: OSTEOARTHRITIS
     Dosage: 500 MG NAPROXEN+ 20 MG ESOMEPRAZOLE MAGNESIUM , TWO TIMES DAILY
     Route: 048
     Dates: start: 20110318, end: 20110822

REACTIONS (2)
  - RENAL FAILURE [None]
  - RASH [None]
